FAERS Safety Report 7714894-5 (Version None)
Quarter: 2011Q3

REPORT INFORMATION
  Report Type: 
  Country: None (occurrence: None)
  Receive Date: 20110829
  Receipt Date: 20110318
  Transmission Date: 20111222
  Serious: No
  Sender: FDA-Public Use
  Company Number: US-GLAXOSMITHKLINE-A0918974A

PATIENT
  Age: 71 Year
  Sex: Female

DRUGS (9)
  1. MALARONE [Suspect]
     Indication: MALARIA PROPHYLAXIS
     Dosage: 1TAB PER DAY
     Route: 048
     Dates: start: 20110317
  2. VITAMIN D [Concomitant]
  3. UNKNOWN MEDICATION [Concomitant]
  4. ACIPHEX [Concomitant]
  5. LIPITOR [Concomitant]
  6. CALTRATE + D [Concomitant]
  7. ASPIRIN [Concomitant]
  8. MULTI-VITAMIN [Concomitant]
  9. FISH OIL [Concomitant]

REACTIONS (1)
  - DIARRHOEA [None]
